FAERS Safety Report 10878476 (Version 2)
Quarter: 2015Q1

REPORT INFORMATION
  Report Type: Spontaneous
  Country: US (occurrence: US)
  Receive Date: 20150302
  Receipt Date: 20150319
  Transmission Date: 20150721
  Serious: Yes (Hospitalization)
  Sender: FDA-Public Use
  Company Number: US-GILEAD-2015-0139104

PATIENT
  Age: 32 Year
  Sex: Female
  Weight: 108.8 kg

DRUGS (4)
  1. TYVASO [Suspect]
     Active Substance: TREPROSTINIL
     Dosage: UNK, QID
     Route: 055
     Dates: start: 20150103
  2. ADCIRCA [Concomitant]
     Active Substance: TADALAFIL
     Dosage: 40 MG, QD
  3. LETAIRIS [Suspect]
     Active Substance: AMBRISENTAN
     Indication: PRODUCT USED FOR UNKNOWN INDICATION
     Route: 065
  4. TYVASO [Suspect]
     Active Substance: TREPROSTINIL
     Indication: PULMONARY HYPERTENSION
     Dosage: UNK, QID
     Route: 055
     Dates: start: 20141231

REACTIONS (13)
  - Bronchitis [Unknown]
  - Headache [Unknown]
  - Dizziness [Unknown]
  - Sinus congestion [Unknown]
  - Cough [Recovered/Resolved]
  - Respiratory tract infection viral [Unknown]
  - Pulmonary pain [Recovered/Resolved]
  - Nausea [Unknown]
  - Drug hypersensitivity [Unknown]
  - Tooth disorder [Unknown]
  - Chest pain [Unknown]
  - Drug intolerance [Recovered/Resolved]
  - Vomiting [Unknown]

NARRATIVE: CASE EVENT DATE: 2015
